FAERS Safety Report 23850786 (Version 1)
Quarter: 2024Q2

REPORT INFORMATION
  Report Type: Spontaneous
  Country: US (occurrence: US)
  Receive Date: 20240514
  Receipt Date: 20240514
  Transmission Date: 20240716
  Serious: No
  Sender: FDA-Public Use
  Company Number: US-002147023-NVSC2024US095306

PATIENT

DRUGS (1)
  1. KESIMPTA [Suspect]
     Active Substance: OFATUMUMAB
     Indication: Product used for unknown indication
     Dosage: UNK (FIRST LOADING DOSE AT 11:00 AM)
     Route: 065

REACTIONS (8)
  - Fatigue [Unknown]
  - Chills [Recovered/Resolved]
  - Pain [Recovered/Resolved]
  - Pyrexia [Unknown]
  - Heart rate abnormal [Unknown]
  - Limb discomfort [Unknown]
  - Nausea [Unknown]
  - Frequent bowel movements [Unknown]
